FAERS Safety Report 4482687-0 (Version None)
Quarter: 2004Q4

REPORT INFORMATION
  Report Type: 
  Country: None (occurrence: None)
  Receive Date: 20041022
  Receipt Date: 20041019
  Transmission Date: 20050328
  Serious: Yes (Other)
  Sender: FDA-Public Use
  Company Number: PHBS2004JP13956

PATIENT
  Age: 74 Year
  Sex: 0

DRUGS (2)
  1. RITALIN [Suspect]
     Dosage: 30 MG/DAY
     Route: 048
  2. PAXIL [Suspect]
     Dosage: 10 MG/DAY
     Route: 048

REACTIONS (2)
  - ENDOCRINE OPHTHALMOPATHY [None]
  - HYPERTHYROIDISM [None]
